FAERS Safety Report 16895972 (Version 2)
Quarter: 2019Q4

REPORT INFORMATION
  Report Type: Report from Study
  Country: ES (occurrence: ES)
  Receive Date: 20191008
  Receipt Date: 20191024
  Transmission Date: 20200122
  Serious: Yes (Other)
  Sender: FDA-Public Use
  Company Number: ES-BIOVITRUM-2011ES0301

PATIENT
  Age: 6 Year
  Sex: Female
  Weight: 43.5 kg

DRUGS (3)
  1. ORFADIN [Suspect]
     Active Substance: NITISINONE
     Dates: start: 20161118, end: 20170221
  2. ORFADIN [Suspect]
     Active Substance: NITISINONE
     Indication: TYROSINAEMIA
     Dates: start: 20070102
  3. ORFADIN [Suspect]
     Active Substance: NITISINONE
     Dates: start: 20170221

REACTIONS (6)
  - Seizure [Not Recovered/Not Resolved]
  - Amino acid level increased [Unknown]
  - Amino acid level decreased [Unknown]
  - Vitamin E decreased [Unknown]
  - Succinylacetone increased [Unknown]
  - Alpha 1 foetoprotein increased [Unknown]

NARRATIVE: CASE EVENT DATE: 20130501
